FAERS Safety Report 23679764 (Version 1)
Quarter: 2024Q1

REPORT INFORMATION
  Report Type: Report from Study
  Country: IT (occurrence: None)
  Receive Date: 20240327
  Receipt Date: 20240327
  Transmission Date: 20240410
  Serious: Yes (Other)
  Sender: FDA-Public Use
  Company Number: 2024A066726

PATIENT
  Age: 65 Year
  Sex: Male

DRUGS (4)
  1. CILGAVIMAB\TIXAGEVIMAB [Suspect]
     Active Substance: CILGAVIMAB\TIXAGEVIMAB
     Indication: COVID-19
     Dosage: 300MG + 300 MG
     Route: 030
  2. NIRMATRELVIR\RITONAVIR [Suspect]
     Active Substance: NIRMATRELVIR\RITONAVIR
     Indication: COVID-19
  3. REMDESIVIR [Suspect]
     Active Substance: REMDESIVIR
     Indication: COVID-19
  4. MOLNUPIRAVIR [Suspect]
     Active Substance: MOLNUPIRAVIR
     Indication: COVID-19

REACTIONS (1)
  - Myocardial infarction [Unknown]
